FAERS Safety Report 16143833 (Version 4)
Quarter: 2019Q2

REPORT INFORMATION
  Report Type: Spontaneous
  Country: DE (occurrence: DE)
  Receive Date: 20190401
  Receipt Date: 20190531
  Transmission Date: 20190711
  Serious: Yes (Hospitalization, Other)
  Sender: FDA-Public Use
  Company Number: DE-JNJFOC-20190338706

PATIENT

DRUGS (1)
  1. EVICEL [Suspect]
     Active Substance: FIBRINOGEN HUMAN\THROMBIN HUMAN
     Indication: VASCULAR PSEUDOANEURYSM
     Route: 050

REACTIONS (6)
  - Drug ineffective for unapproved indication [Unknown]
  - Surgery [Unknown]
  - Neuralgia [Unknown]
  - Vascular pseudoaneurysm [Unknown]
  - Product use in unapproved indication [Unknown]
  - Off label use [Unknown]
